FAERS Safety Report 17006952 (Version 1)
Quarter: 2019Q4

REPORT INFORMATION
  Report Type: Spontaneous
  Country: US (occurrence: US)
  Receive Date: 20191107
  Receipt Date: 20191107
  Transmission Date: 20200122
  Serious: No
  Sender: FDA-Public Use
  Company Number: US-BAXTER-2019BAX022193

PATIENT
  Sex: Male

DRUGS (1)
  1. 10% DEXTROSE INJECTION, USP [Suspect]
     Active Substance: DEXTROSE
     Indication: HYPOGLYCAEMIA NEONATAL
     Dosage: RECEIVED ONLY A PART FROM THE 500 ML BAG AT AN EXPECTED PRESCRIBED RATE
     Route: 065
     Dates: start: 20191005, end: 20191005

REACTIONS (2)
  - Blood glucose increased [Recovered/Resolved]
  - Therapeutic response increased [Recovered/Resolved]

NARRATIVE: CASE EVENT DATE: 20191005
